FAERS Safety Report 8382262-1 (Version None)
Quarter: 2012Q1

REPORT INFORMATION
  Report Type: 
  Country: None (occurrence: None)
  Receive Date: 20120323
  Receipt Date: 20110511
  Transmission Date: 20120608
  Serious: Yes (Hospitalization)
  Sender: FDA-Public Use
  Company Number: 163-21880-11051683

PATIENT
  Age: 70 Year
  Sex: Male

DRUGS (2)
  1. REVLIMID [Suspect]
     Indication: MULTIPLE MYELOMA
     Dosage: 25 MG, DAYS 1-4, THEN 4 DAYS OFF FOR 28 D CYCLE, PO, 25 MG, DAYS 1-4, THEN 3 DAYS OFF, PO
     Route: 048
     Dates: start: 20080110, end: 20080528
  2. REVLIMID [Suspect]
     Indication: MULTIPLE MYELOMA
     Dosage: 25 MG, DAYS 1-4, THEN 4 DAYS OFF FOR 28 D CYCLE, PO, 25 MG, DAYS 1-4, THEN 3 DAYS OFF, PO
     Route: 048
     Dates: start: 20080915, end: 20110101

REACTIONS (1)
  - MULTIPLE MYELOMA [None]
